FAERS Safety Report 22202771 (Version 1)
Quarter: 2023Q2

REPORT INFORMATION
  Report Type: Spontaneous
  Country: US (occurrence: US)
  Receive Date: 20230412
  Receipt Date: 20230412
  Transmission Date: 20230722
  Serious: No
  Sender: FDA-Public Use
  Company Number: US-JNJFOC-20190724295

PATIENT
  Age: 66 Year
  Sex: Female
  Weight: 38.590 kg

DRUGS (1)
  1. IMODIUM A-D [Suspect]
     Active Substance: LOPERAMIDE HYDROCHLORIDE
     Indication: Diarrhoea
     Dosage: LESS THAN A TEASPOON ONCE
     Route: 050

REACTIONS (2)
  - Abdominal pain upper [Unknown]
  - Adverse drug reaction [Unknown]
